FAERS Safety Report 18755753 (Version 1)
Quarter: 2021Q1

REPORT INFORMATION
  Report Type: Spontaneous
  Country: DE (occurrence: DE)
  Receive Date: 20210119
  Receipt Date: 20210119
  Transmission Date: 20210419
  Serious: Yes (Other)
  Sender: FDA-Public Use
  Company Number: DE-SUN PHARMACEUTICAL INDUSTRIES LTD-2021RR-275669

PATIENT
  Age: 25 Year
  Sex: Female
  Weight: 54 kg

DRUGS (1)
  1. CIPROFLOXACIN. [Suspect]
     Active Substance: CIPROFLOXACIN
     Indication: CYSTITIS
     Dosage: 250MG (MORNING AND EVENING) FOR 14 DAYS, DOSE WAS INCREASED AFTER ONE WEEK BY DOCTOR
     Route: 048
     Dates: start: 20150111

REACTIONS (31)
  - Toothache [Unknown]
  - Hallucination [Unknown]
  - Polyneuropathy [Unknown]
  - Acne [Recovering/Resolving]
  - Tremor [Unknown]
  - Tendonitis [Unknown]
  - Petechiae [Unknown]
  - Lymphoedema [Unknown]
  - Psychomotor hyperactivity [Recovering/Resolving]
  - Confusional state [Unknown]
  - Agitation [Recovering/Resolving]
  - Rash [Recovering/Resolving]
  - Arthralgia [Unknown]
  - Musculoskeletal pain [Unknown]
  - Sleep disorder [Recovering/Resolving]
  - Anxiety [Unknown]
  - Alopecia [Unknown]
  - Tooth discolouration [Unknown]
  - Headache [Recovering/Resolving]
  - Hepatitis [Unknown]
  - Disorientation [Unknown]
  - Dizziness [Unknown]
  - Migraine [Unknown]
  - Nausea [Recovering/Resolving]
  - Somnolence [Recovering/Resolving]
  - Dry eye [Unknown]
  - Bone pain [Unknown]
  - Sleep disorder [Unknown]
  - Muscle swelling [Unknown]
  - Diarrhoea [Recovering/Resolving]
  - Nightmare [Unknown]
